FAERS Safety Report 17714014 (Version 1)
Quarter: 2020Q2

REPORT INFORMATION
  Report Type: Spontaneous
  Country: AT (occurrence: AT)
  Receive Date: 20200427
  Receipt Date: 20200427
  Transmission Date: 20200714
  Serious: Yes (Other)
  Sender: FDA-Public Use
  Company Number: AT-MYLANLABS-2020M1041333

PATIENT
  Age: 77 Year
  Sex: Male

DRUGS (3)
  1. APIXABAN [Concomitant]
     Active Substance: APIXABAN
     Indication: ACUTE MYOCARDIAL INFARCTION
     Dosage: UNK
  2. THROMBO ASS [Concomitant]
     Active Substance: ASPIRIN
     Indication: ACUTE MYOCARDIAL INFARCTION
     Dosage: UNK
  3. CLOPIDOGREL [Suspect]
     Active Substance: CLOPIDOGREL BISULFATE
     Indication: ACUTE MYOCARDIAL INFARCTION
     Dosage: UNK

REACTIONS (4)
  - Dyspnoea [Unknown]
  - Melaena [Recovering/Resolving]
  - Anaemia [Unknown]
  - General physical health deterioration [Recovering/Resolving]
